FAERS Safety Report 22272870 (Version 1)
Quarter: 2023Q2

REPORT INFORMATION
  Report Type: Spontaneous
  Country: AU (occurrence: AU)
  Receive Date: 20230502
  Receipt Date: 20230502
  Transmission Date: 20230722
  Serious: Yes (Other)
  Sender: FDA-Public Use
  Company Number: AU-002147023-NVSC2023AU096657

PATIENT
  Age: 47 Year
  Sex: Female

DRUGS (1)
  1. OMALIZUMAB [Suspect]
     Active Substance: OMALIZUMAB
     Indication: Asthma
     Dosage: UNK
     Route: 042
     Dates: start: 202207

REACTIONS (6)
  - Pharyngeal swelling [Unknown]
  - Dyspnoea [Unknown]
  - Hyperhidrosis [Unknown]
  - Pallor [Unknown]
  - Hypersensitivity [Recovered/Resolved]
  - Rash [Unknown]

NARRATIVE: CASE EVENT DATE: 20221101
